FAERS Safety Report 15190346 (Version 1)
Quarter: 2018Q3

REPORT INFORMATION
  Report Type: Spontaneous
  Country: US (occurrence: US)
  Receive Date: 20180625
  Receipt Date: 20180625
  Transmission Date: 20181010
  Serious: Yes (Hospitalization)
  Sender: FDA-Public Use
  Company Number: None

PATIENT
  Age: 65 Year
  Sex: Male

DRUGS (13)
  1. DILT XR [Concomitant]
  2. ALFUZOSIN [Concomitant]
     Active Substance: ALFUZOSIN
  3. ROSUVASTATIN. [Concomitant]
     Active Substance: ROSUVASTATIN
  4. TIMOLOL. [Concomitant]
     Active Substance: TIMOLOL
  5. SIMBRINZA [Concomitant]
     Active Substance: BRIMONIDINE TARTRATE\BRINZOLAMIDE
  6. MELOXICAM. [Concomitant]
     Active Substance: MELOXICAM
  7. MUPIROCIN. [Concomitant]
     Active Substance: MUPIROCIN
  8. ASPIRIN. [Concomitant]
     Active Substance: ASPIRIN
  9. CLOBETASOL [Concomitant]
     Active Substance: CLOBETASOL
  10. LUMIGAN [Concomitant]
     Active Substance: BIMATOPROST
  11. HUMIRA [Suspect]
     Active Substance: ADALIMUMAB
     Indication: RHEUMATOID ARTHRITIS
     Dosage: ?          OTHER FREQUENCY:QOD;?
     Route: 058
  12. LUMIGAN [Concomitant]
     Active Substance: BIMATOPROST
  13. OXYCOD APAP [Concomitant]

REACTIONS (1)
  - Knee operation [None]

NARRATIVE: CASE EVENT DATE: 20180623
